FAERS Safety Report 9633848 (Version 1)
Quarter: 2013Q3

REPORT INFORMATION
  Report Type: Spontaneous
  Country: US (occurrence: None)
  Receive Date: 20130926
  Receipt Date: 20130926
  Transmission Date: 20140515
  Serious: Yes (Other)
  Sender: FDA-Public Use
  Company Number: 1000582314-2013-00005

PATIENT
  Sex: Male

DRUGS (1)
  1. BREATHRX [Suspect]
     Dosage: GARGLE AND EXPECTORATE
     Dates: start: 20130916

REACTIONS (2)
  - Heart rate increased [None]
  - Pruritus [None]
